FAERS Safety Report 6525181-5 (Version None)
Quarter: 2010Q1

REPORT INFORMATION
  Report Type: 
  Country: None (occurrence: None)
  Receive Date: 20100104
  Receipt Date: 20091203
  Transmission Date: 20100710
  Serious: No
  Sender: FDA-Public Use
  Company Number: US-BAYER-200942055NA

PATIENT
  Age: 43 Year
  Sex: Female
  Weight: 64 kg

DRUGS (3)
  1. MIRENA [Suspect]
     Indication: MENORRHAGIA
     Dosage: CONTINUOUS
     Route: 015
     Dates: start: 20090605
  2. LEXAPRO [Concomitant]
     Indication: DRUG USE FOR UNKNOWN INDICATION
     Dosage: UNKNOWN DOSAGE
  3. UNKNOWN PILL [Concomitant]
     Dosage: UNKNOWN PILL AND UNKNOWN DOSAGE
     Route: 048

REACTIONS (3)
  - ABDOMINAL PAIN LOWER [None]
  - MEDICAL DEVICE COMPLICATION [None]
  - MENORRHAGIA [None]
